FAERS Safety Report 16010767 (Version 3)
Quarter: 2019Q2

REPORT INFORMATION
  Report Type: Spontaneous
  Country: US (occurrence: US)
  Receive Date: 20190227
  Receipt Date: 20190515
  Transmission Date: 20190711
  Serious: Yes (Other)
  Sender: FDA-Public Use
  Company Number: US-GLAXOSMITHKLINE-US2019GSK033939

PATIENT
  Age: 61 Year
  Sex: Female
  Weight: 72.56 kg

DRUGS (3)
  1. BUPROPION. [Suspect]
     Active Substance: BUPROPION
     Indication: DEPRESSION
     Dosage: UNK
     Dates: end: 201711
  2. PRISTIQ EXTENDED-RELEASE [Concomitant]
     Active Substance: DESVENLAFAXINE SUCCINATE
  3. LYRICA [Suspect]
     Active Substance: PREGABALIN

REACTIONS (7)
  - Seizure [Not Recovered/Not Resolved]
  - Impaired work ability [Unknown]
  - Transient ischaemic attack [Not Recovered/Not Resolved]
  - Stress [Unknown]
  - Fall [Unknown]
  - Amnesia [Unknown]
  - Weight increased [Unknown]

NARRATIVE: CASE EVENT DATE: 20170513
